FAERS Safety Report 25347571 (Version 1)
Quarter: 2025Q2

REPORT INFORMATION
  Report Type: Spontaneous
  Country: RS (occurrence: RS)
  Receive Date: 20250522
  Receipt Date: 20250522
  Transmission Date: 20250716
  Serious: Yes (Other)
  Sender: TEVA
  Company Number: RS-TEVA-VS-3331586

PATIENT
  Age: 80 Year
  Sex: Male

DRUGS (1)
  1. TAMSULOSIN HYDROCHLORIDE [Suspect]
     Active Substance: TAMSULOSIN HYDROCHLORIDE
     Indication: Product used for unknown indication
     Route: 048

REACTIONS (5)
  - Syncope [Unknown]
  - Nocturia [Unknown]
  - Hypotension [Unknown]
  - Gait disturbance [Unknown]
  - Headache [Unknown]
